FAERS Safety Report 23622999 (Version 2)
Quarter: 2024Q2

REPORT INFORMATION
  Report Type: Spontaneous
  Country: US (occurrence: US)
  Receive Date: 20240312
  Receipt Date: 20240419
  Transmission Date: 20240715
  Serious: No
  Sender: FDA-Public Use
  Company Number: US-LEO Pharma-368460

PATIENT
  Age: 41 Year
  Sex: Male

DRUGS (2)
  1. ADBRY [Suspect]
     Active Substance: TRALOKINUMAB-LDRM
     Indication: Dermatitis atopic
     Dosage: TREATMENT IS ONGOING?300 MG ONCE WEEKLY SQ
     Route: 058
     Dates: start: 20230907
  2. ADBRY [Suspect]
     Active Substance: TRALOKINUMAB-LDRM
     Indication: Dermatitis atopic
     Dosage: TREATMENT IS ONGOING?300 MG ONCE WEEKLY SQ
     Route: 058
     Dates: start: 20230907

REACTIONS (5)
  - Conjunctivitis [Unknown]
  - Inappropriate schedule of product administration [Unknown]
  - Vision blurred [Unknown]
  - Vision blurred [Unknown]
  - Visual impairment [Unknown]

NARRATIVE: CASE EVENT DATE: 20240305
